FAERS Safety Report 24260086 (Version 3)
Quarter: 2025Q3

REPORT INFORMATION
  Report Type: Spontaneous
  Country: US (occurrence: US)
  Receive Date: 20240828
  Receipt Date: 20250702
  Transmission Date: 20251021
  Serious: No
  Sender: SANOFI AVENTIS
  Company Number: US-SA-SAC20240821000068

PATIENT
  Age: 6 Year
  Sex: Male

DRUGS (1)
  1. DUPIXENT [Suspect]
     Active Substance: DUPILUMAB
     Indication: Dermatitis atopic
     Dosage: 300 MG, Q4W
     Route: 058
     Dates: start: 2024

REACTIONS (10)
  - Pain [Not Recovered/Not Resolved]
  - Haemorrhage [Unknown]
  - Cough [Unknown]
  - Dry skin [Unknown]
  - Skin mass [Recovering/Resolving]
  - Pruritus [Recovered/Resolved]
  - Skin exfoliation [Unknown]
  - Injection site reaction [Recovered/Resolved]
  - Rash [Unknown]
  - Injection site pain [Unknown]

NARRATIVE: CASE EVENT DATE: 20240101
